FAERS Safety Report 12443416 (Version 1)
Quarter: 2016Q2

REPORT INFORMATION
  Report Type: Spontaneous
  Country: US (occurrence: US)
  Receive Date: 20160607
  Receipt Date: 20160607
  Transmission Date: 20160815
  Serious: No
  Sender: FDA-Public Use
  Company Number: PHEH2016US013398

PATIENT
  Sex: Male

DRUGS (1)
  1. GILENYA [Suspect]
     Active Substance: FINGOLIMOD HYDROCHLORIDE
     Indication: PRODUCT USED FOR UNKNOWN INDICATION
     Dosage: UNK
     Route: 065

REACTIONS (22)
  - Balance disorder [Unknown]
  - Periarthritis [Unknown]
  - Pain [Unknown]
  - Hypoaesthesia [Unknown]
  - Disturbance in attention [Unknown]
  - Band sensation [Unknown]
  - Uhthoff^s phenomenon [Unknown]
  - Fall [Unknown]
  - Musculoskeletal stiffness [Unknown]
  - Bladder disorder [Unknown]
  - Abdominal discomfort [Unknown]
  - Cognitive disorder [Unknown]
  - Mobility decreased [Unknown]
  - Fatigue [Unknown]
  - Tension headache [Unknown]
  - Depression [Unknown]
  - Muscle spasms [Unknown]
  - Paraesthesia [Unknown]
  - Chest discomfort [Unknown]
  - Sexual dysfunction [Unknown]
  - Amnesia [Unknown]
  - Anxiety [Unknown]

NARRATIVE: CASE EVENT DATE: 201002
